FAERS Safety Report 14765918 (Version 1)
Quarter: 2018Q2

REPORT INFORMATION
  Report Type: Spontaneous
  Country: US (occurrence: US)
  Receive Date: 20180416
  Receipt Date: 20180416
  Transmission Date: 20180711
  Serious: No
  Sender: FDA-Public Use
  Company Number: US-ASTELLAS-2017US042065

PATIENT
  Sex: Male

DRUGS (1)
  1. PROGRAF [Suspect]
     Active Substance: TACROLIMUS\TACROLIMUS ANHYDROUS
     Indication: ACUTE MYELOID LEUKAEMIA (IN REMISSION)
     Dosage: UNK, UNKNOWN FREQ.
     Route: 048

REACTIONS (3)
  - Throat irritation [Unknown]
  - Off label use [Unknown]
  - Cough [Unknown]
